FAERS Safety Report 8760863 (Version 2)
Quarter: 2012Q4

REPORT INFORMATION
  Report Type: 
  Country: GB (occurrence: GB)
  Receive Date: 20120830
  Receipt Date: 20121009
  Transmission Date: 20130627
  Serious: Yes (Life-Threatening)
  Sender: FDA-Public Use
  Company Number: GB-ACCORD-014541

PATIENT
  Age: 86 Year
  Sex: Male
  Weight: 89 kg

DRUGS (7)
  1. BICALUTAMIDE [Suspect]
     Indication: PROSTATE CANCER
     Route: 048
     Dates: start: 20120801
  2. NICORANDIL [Concomitant]
     Indication: DRUG USE FOR UNKNOWN INDICATION
  3. WARFARIN [Suspect]
     Indication: AORTIC VALVE REPLACEMENT
     Route: 048
  4. ATORVASTATIN [Concomitant]
     Indication: DRUG USE FOR UNKNOWN INDICATION
  5. BENDROFLUMETHIAZIDE [Concomitant]
     Indication: DRUG USE FOR UNKNOWN INDICATION
  6. TAMSULOSIN [Concomitant]
     Indication: DRUG USE FOR UNKNOWN INDICATION
  7. BISOPROLOL [Concomitant]
     Indication: DRUG USE FOR UNKNOWN INDICATION

REACTIONS (2)
  - International normalised ratio increased [Recovered/Resolved]
  - Haematuria [Recovered/Resolved]
